FAERS Safety Report 9308981 (Version 2)
Quarter: 2013Q2

REPORT INFORMATION
  Report Type: Spontaneous
  Country: JP (occurrence: JP)
  Receive Date: 20130524
  Receipt Date: 20130605
  Transmission Date: 20140414
  Serious: No
  Sender: FDA-Public Use
  Company Number: PHHY2013JP051912

PATIENT
  Age: 0 Day
  Sex: 0
  Weight: 3 kg

DRUGS (3)
  1. LOPRESSOR [Suspect]
     Dosage: 40 MG, DAILY
     Route: 064
  2. LOPRESSOR [Suspect]
     Dosage: 160 MG, DAILY
     Route: 064
  3. LOPRESSOR [Suspect]
     Dosage: 200 MG, DAILY
     Route: 064

REACTIONS (3)
  - Foetal distress syndrome [Recovered/Resolved]
  - Heart sounds abnormal [Recovered/Resolved]
  - Foetal exposure during pregnancy [Unknown]
